FAERS Safety Report 6346540-X (Version None)
Quarter: 2009Q3

REPORT INFORMATION
  Report Type: 
  Country: None (occurrence: None)
  Receive Date: 20090909
  Receipt Date: 20090901
  Transmission Date: 20100115
  Serious: Yes (Hospitalization)
  Sender: FDA-Public Use
  Company Number: US-GILEAD-2009-0024040

PATIENT
  Sex: Female
  Weight: 86.26 kg

DRUGS (12)
  1. LETAIRIS [Suspect]
     Indication: PULMONARY ARTERIAL HYPERTENSION
     Route: 048
     Dates: start: 20080724
  2. COUMADIN [Concomitant]
  3. COREG [Concomitant]
  4. ALTACE [Concomitant]
  5. ASPIRIN [Concomitant]
  6. SYNTHROID [Concomitant]
  7. CHLORTHALIDONE [Concomitant]
  8. XALATAN [Concomitant]
  9. PILOCARPINE HYDROCHLORIDE [Concomitant]
  10. DITROPAN [Concomitant]
  11. FLAXSEED OIL [Concomitant]
  12. VITAMIN D [Concomitant]

REACTIONS (1)
  - CEREBROVASCULAR ACCIDENT [None]
